FAERS Safety Report 25852090 (Version 1)
Quarter: 2025Q3

REPORT INFORMATION
  Report Type: Spontaneous
  Country: US (occurrence: None)
  Receive Date: 20250925
  Receipt Date: 20250925
  Transmission Date: 20251021
  Serious: Yes (unspecified)
  Sender: FDA-CTU
  Company Number: None

PATIENT
  Age: 59 Year
  Sex: Male
  Weight: 123.7 kg

DRUGS (2)
  1. GAMUNEX-C [Suspect]
     Active Substance: HUMAN IMMUNOGLOBULIN G
     Indication: Myopathy
     Route: 041
  2. LISINOPRIL [Suspect]
     Active Substance: LISINOPRIL

REACTIONS (6)
  - Infusion related reaction [None]
  - Product substitution issue [None]
  - Hypersensitivity [None]
  - Hypoaesthesia oral [None]
  - Lip swelling [None]
  - Therapy cessation [None]

NARRATIVE: CASE EVENT DATE: 20250922
